FAERS Safety Report 9370646 (Version 2)
Quarter: 2013Q3

REPORT INFORMATION
  Report Type: Spontaneous
  Country: FR (occurrence: FR)
  Receive Date: 20130626
  Receipt Date: 20130805
  Transmission Date: 20140515
  Serious: Yes (Hospitalization)
  Sender: FDA-Public Use
  Company Number: FR-BAXTER-2013BAX023172

PATIENT
  Age: 86 Year
  Sex: Male

DRUGS (7)
  1. GLUCOSE 5% BIOPERF(EXPLOITANTAGUETTANT) SOLUTION POUR PERFUSION [Suspect]
     Indication: OFF LABEL USE
     Route: 058
     Dates: start: 20130329
  2. GLUCOSE 5% BIOPERF(EXPLOITANTAGUETTANT) SOLUTION POUR PERFUSION [Suspect]
     Indication: PRODUCT USED FOR UNKNOWN INDICATION
  3. HEMIGOXINE [Concomitant]
     Indication: PRODUCT USED FOR UNKNOWN INDICATION
     Route: 048
     Dates: start: 20130323
  4. KARDEGIC [Concomitant]
     Indication: PRODUCT USED FOR UNKNOWN INDICATION
     Route: 048
     Dates: start: 20130323
  5. PREVISCAN [Concomitant]
     Indication: PRODUCT USED FOR UNKNOWN INDICATION
     Route: 048
     Dates: start: 20130323
  6. SERESTA [Concomitant]
     Indication: PRODUCT USED FOR UNKNOWN INDICATION
     Route: 048
     Dates: start: 20130410
  7. TEMERIT [Concomitant]
     Indication: PRODUCT USED FOR UNKNOWN INDICATION
     Route: 048
     Dates: start: 20130320

REACTIONS (4)
  - Injection site induration [Recovered/Resolved]
  - Pain [Recovered/Resolved]
  - Injection site erythema [Recovered/Resolved]
  - Incorrect route of drug administration [Unknown]
